FAERS Safety Report 11142759 (Version 1)
Quarter: 2015Q2

REPORT INFORMATION
  Report Type: Spontaneous
  Country: CN (occurrence: US)
  Receive Date: 20150525
  Receipt Date: 20150525
  Transmission Date: 20150821
  Serious: Yes (Other)
  Sender: FDA-Public Use
  Company Number: CN-JNJFOC-20140613176

PATIENT
  Age: 10 Year
  Sex: Male

DRUGS (2)
  1. LOPERAMIDE [Suspect]
     Active Substance: LOPERAMIDE
     Route: 048
  2. LOPERAMIDE [Suspect]
     Active Substance: LOPERAMIDE
     Indication: GASTROENTERITIS
     Route: 048

REACTIONS (2)
  - Anaphylactic shock [Recovering/Resolving]
  - Product use issue [Unknown]
